FAERS Safety Report 10391994 (Version 14)
Quarter: 2021Q4

REPORT INFORMATION
  Report Type: Report from Study
  Country: DE (occurrence: DE)
  Receive Date: 20140819
  Receipt Date: 20211118
  Transmission Date: 20220303
  Serious: Yes (Hospitalization)
  Sender: FDA-Public Use
  Company Number: PHHO2014DE011210

PATIENT
  Age: 4 Year
  Sex: Female
  Weight: 14.19 kg

DRUGS (9)
  1. CERITINIB [Suspect]
     Active Substance: CERITINIB
     Indication: Neuroblastoma
     Dosage: 350 MG, QD
     Route: 048
     Dates: start: 20140708, end: 20140813
  2. CERITINIB [Suspect]
     Active Substance: CERITINIB
     Dosage: 350 MG, QD
     Route: 048
     Dates: start: 20140820, end: 20140901
  3. CERITINIB [Suspect]
     Active Substance: CERITINIB
     Dosage: 300 MG, QD
     Route: 048
     Dates: start: 20140912, end: 20140921
  4. CERITINIB [Suspect]
     Active Substance: CERITINIB
     Dosage: 250 MG, QD
     Route: 048
     Dates: start: 20141006, end: 20141016
  5. CERITINIB [Suspect]
     Active Substance: CERITINIB
     Dosage: 300 MG, QD
     Route: 048
     Dates: start: 20141017, end: 20141103
  6. ACETAMINOPHEN [Concomitant]
     Active Substance: ACETAMINOPHEN
     Indication: Pain
     Dosage: 160 MG, UNK
     Route: 048
     Dates: start: 20140813
  7. KEPINOL [Concomitant]
     Active Substance: SULFAMETHOXAZOLE\TRIMETHOPRIM
     Indication: Prophylaxis
     Dosage: 40 MG, BID
     Route: 048
     Dates: start: 201312
  8. KEPINOL [Concomitant]
     Active Substance: SULFAMETHOXAZOLE\TRIMETHOPRIM
     Dosage: 40 MG, BID
     Route: 048
     Dates: start: 201401, end: 20140901
  9. ONDANSETRON [Concomitant]
     Active Substance: ONDANSETRON
     Indication: Nausea
     Dosage: 4 MG, QD
     Route: 048
     Dates: start: 20140713, end: 20140901

REACTIONS (6)
  - Blood lactate dehydrogenase increased [Recovered/Resolved]
  - Lipase increased [Recovered/Resolved]
  - Lipase increased [Recovered/Resolved]
  - Abdominal pain [Recovered/Resolved]
  - Abdominal pain [Recovered/Resolved]
  - Hepatic enzyme increased [Recovered/Resolved]

NARRATIVE: CASE EVENT DATE: 20140812
